FAERS Safety Report 4302220-3 (Version None)
Quarter: 2004Q1

REPORT INFORMATION
  Report Type: 
  Country: None (occurrence: None)
  Receive Date: 20040220
  Receipt Date: 20040209
  Transmission Date: 20041129
  Serious: Yes (Disabling)
  Sender: FDA-Public Use
  Company Number: UK058552

PATIENT
  Age: 61 Year
  Sex: Female
  Weight: 42 kg

DRUGS (9)
  1. ARANESP [Suspect]
     Indication: RENAL FAILURE CHRONIC
     Dosage: 30 MCG, WEEKLY, SC
     Route: 058
     Dates: start: 20030719
  2. REPAGLINIDE [Concomitant]
  3. FUROSEMIDE [Concomitant]
  4. ISRADIPINE [Concomitant]
  5. LEVOTHYROXINE SODIUM [Concomitant]
  6. CHOLECALCIFEROL [Concomitant]
  7. ASPIRIN [Concomitant]
  8. ETAMSILATE [Concomitant]
  9. ENALAPRIL MALEATE [Concomitant]

REACTIONS (5)
  - ANAEMIA [None]
  - BLINDNESS UNILATERAL [None]
  - OEDEMA PERIPHERAL [None]
  - PERICARDITIS URAEMIC [None]
  - RETINAL VEIN THROMBOSIS [None]
